FAERS Safety Report 6069239-6 (Version None)
Quarter: 2009Q1

REPORT INFORMATION
  Report Type: 
  Country: None (occurrence: None)
  Receive Date: 20090206
  Receipt Date: 20090127
  Transmission Date: 20090719
  Serious: Yes (Hospitalization)
  Sender: FDA-Public Use
  Company Number: PHHY2009GB03038

PATIENT
  Sex: Female

DRUGS (2)
  1. CLOZARIL [Suspect]
     Indication: SCHIZOPHRENIA
     Dosage: 250 MG/DAY
     Dates: start: 20010314
  2. CLOZARIL [Suspect]
     Dosage: 50MG MANE AND 200MG NOCTE
     Dates: start: 20090126

REACTIONS (5)
  - BLOOD PRESSURE DECREASED [None]
  - FALL [None]
  - MENTAL IMPAIRMENT [None]
  - TACHYCARDIA [None]
  - TREATMENT NONCOMPLIANCE [None]
